FAERS Safety Report 6741934-2 (Version None)
Quarter: 2010Q2

REPORT INFORMATION
  Report Type: 
  Country: None (occurrence: None)
  Receive Date: 20100526
  Receipt Date: 20100517
  Transmission Date: 20101027
  Serious: Yes (Hospitalization)
  Sender: FDA-Public Use
  Company Number: B0653146A

PATIENT
  Sex: Male

DRUGS (4)
  1. RETROVIR [Suspect]
     Indication: ANTIVIRAL PROPHYLAXIS
     Dosage: 2MGK FOUR TIMES PER DAY
     Route: 048
     Dates: start: 20091205, end: 20100115
  2. RETROVIR [Suspect]
     Dates: start: 20091204, end: 20091204
  3. COMBIVIR [Concomitant]
  4. KALETRA [Concomitant]

REACTIONS (2)
  - DRUG EXPOSURE DURING PREGNANCY [None]
  - HYPERLACTACIDAEMIA [None]
